FAERS Safety Report 18287205 (Version 1)
Quarter: 2020Q3

REPORT INFORMATION
  Report Type: Spontaneous
  Country: GB (occurrence: GB)
  Receive Date: 20200921
  Receipt Date: 20200921
  Transmission Date: 20201103
  Serious: Yes (Other)
  Sender: FDA-Public Use
  Company Number: GB-TEVA-2020-GB-1828764

PATIENT
  Age: 79 Year
  Sex: Male
  Weight: 64.86 kg

DRUGS (2)
  1. NEBIVOLOL. [Suspect]
     Active Substance: NEBIVOLOL
     Indication: CARDIAC FAILURE
     Route: 048
     Dates: start: 20200101
  2. METFORMIN [Concomitant]
     Active Substance: METFORMIN HYDROCHLORIDE

REACTIONS (2)
  - Cough [Recovering/Resolving]
  - Breath odour [Recovering/Resolving]

NARRATIVE: CASE EVENT DATE: 20200101
